FAERS Safety Report 6371938-3 (Version None)
Quarter: 2009Q3

REPORT INFORMATION
  Report Type: 
  Country: None (occurrence: None)
  Receive Date: 20090923
  Receipt Date: 20090911
  Transmission Date: 20100115
  Serious: Yes (Life-Threatening)
  Sender: FDA-Public Use
  Company Number: JP-SANOFI-SYNTHELABO-A01200909484

PATIENT
  Age: 72 Year
  Sex: Female
  Weight: 51 kg

DRUGS (5)
  1. FLUOROURACIL [Concomitant]
     Indication: COLON CANCER
     Dosage: 500MG/BODY IN BOLUS THEN 700MG/BODY AS CONTINUOUS INFUSION
     Route: 042
     Dates: start: 20090625, end: 20090626
  2. ELPLAT [Suspect]
     Indication: COLON CANCER
     Dosage: 120 MG
     Route: 041
     Dates: start: 20090625, end: 20090729
  3. ELPLAT [Suspect]
     Dosage: 120 MG
     Route: 041
     Dates: start: 20090826, end: 20090826
  4. ISOVORIN [Concomitant]
     Indication: COLON CANCER
     Dosage: 150 MG
     Route: 042
     Dates: start: 20090729, end: 20090729
  5. ISOVORIN [Concomitant]
     Dosage: 150 MG
     Route: 042
     Dates: start: 20090826, end: 20090826

REACTIONS (3)
  - BLOOD PRESSURE DECREASED [None]
  - CARDIAC ARREST [None]
  - HYPOXIA [None]
